FAERS Safety Report 8412275-2 (Version None)
Quarter: 2012Q2

REPORT INFORMATION
  Report Type: 
  Country: None (occurrence: None)
  Receive Date: 20120605
  Receipt Date: 20120522
  Transmission Date: 20120825
  Serious: Yes (Other)
  Sender: FDA-Public Use
  Company Number: JP-PFIZER INC-2012102577

PATIENT
  Sex: Female

DRUGS (2)
  1. AMLODIPINE [Concomitant]
     Dosage: UNK
  2. CELEBREX [Suspect]
     Dosage: 100 MG, UNK/DAY
     Route: 048
     Dates: start: 20110801

REACTIONS (1)
  - APHAGIA [None]
